FAERS Safety Report 14392198 (Version 1)
Quarter: 2018Q1

REPORT INFORMATION
  Report Type: Spontaneous
  Country: US (occurrence: US)
  Receive Date: 20180116
  Receipt Date: 20180116
  Transmission Date: 20180509
  Serious: Yes (Other)
  Sender: FDA-Public Use
  Company Number: US-PFIZER INC-2018018180

PATIENT
  Sex: Female

DRUGS (2)
  1. XANAX [Suspect]
     Active Substance: ALPRAZOLAM
     Dosage: UNK
  2. LYRICA [Suspect]
     Active Substance: PREGABALIN
     Dosage: UNK

REACTIONS (11)
  - Pain [Unknown]
  - Dysphagia [Unknown]
  - Amnesia [Unknown]
  - Hypoacusis [Unknown]
  - Gait inability [Unknown]
  - Speech disorder [Unknown]
  - Suicidal behaviour [Recovered/Resolved]
  - Insomnia [Unknown]
  - Bedridden [Unknown]
  - Arthropathy [Unknown]
  - Disturbance in attention [Unknown]
